FAERS Safety Report 24527250 (Version 1)
Quarter: 2024Q4

REPORT INFORMATION
  Report Type: Report from Study
  Country: EC (occurrence: EC)
  Receive Date: 20241021
  Receipt Date: 20241021
  Transmission Date: 20250115
  Serious: No
  Sender: ROCHE
  Company Number: EC-ROCHE-3517764

PATIENT
  Age: 51 Year
  Sex: Female

DRUGS (2)
  1. COTELLIC [Suspect]
     Active Substance: COBIMETINIB
     Indication: Metastatic malignant melanoma
     Dosage: DOSE OF 2 TABLETS - FREQUENCY WAS NOT REPORTED
     Route: 065
     Dates: start: 20230627
  2. VEMURAFENIB [Suspect]
     Active Substance: VEMURAFENIB
     Indication: Product used for unknown indication
     Dosage: DOSE OF 4 TABLETS IN THE MORNING AND AT NIGHT - FREQUENCY WAS NOT REPORTED
     Route: 065
     Dates: start: 20230627

REACTIONS (3)
  - Lip blister [Not Recovered/Not Resolved]
  - Lip injury [Not Recovered/Not Resolved]
  - Vomiting [Not Recovered/Not Resolved]
